FAERS Safety Report 8478814-0 (Version None)
Quarter: 2012Q2

REPORT INFORMATION
  Report Type: 
  Country: None (occurrence: None)
  Receive Date: 20120629
  Receipt Date: 20120621
  Transmission Date: 20120825
  Serious: Yes (Other)
  Sender: FDA-Public Use
  Company Number: US-JNJFOC-20120610928

PATIENT
  Sex: Female
  Weight: 8.62 kg

DRUGS (1)
  1. TOPAMAX [Suspect]
     Indication: EXPOSURE DURING BREAST FEEDING
     Route: 063
     Dates: start: 20120501, end: 20120620

REACTIONS (2)
  - BREAST FEEDING [None]
  - NYSTAGMUS [None]
